FAERS Safety Report 18652654 (Version 1)
Quarter: 2020Q4

REPORT INFORMATION
  Report Type: Other
  Country: US (occurrence: US)
  Receive Date: 20201222
  Receipt Date: 20201222
  Transmission Date: 20210114
  Serious: Yes (Other)
  Sender: FDA-Public Use
  Company Number: US-ROCHE-2732148

PATIENT
  Age: 61 Year
  Sex: Female

DRUGS (13)
  1. LEVOTHYROXINE. [Concomitant]
     Active Substance: LEVOTHYROXINE
     Route: 048
  2. METOPROLOL. [Concomitant]
     Active Substance: METOPROLOL
     Dosage: EXTENDED RELEASE
     Route: 048
  3. VITAMIN D3 [Concomitant]
     Active Substance: CHOLECALCIFEROL
     Dosage: ONGOING: UNKNOWN?5000 UNITS
     Route: 048
  4. LEVOTHYROXINE. [Concomitant]
     Active Substance: LEVOTHYROXINE
     Dosage: ONCE DAILY BEFORE BREAKFAST
     Route: 048
  5. AMPHETAMINE;DEXTROAMPHETAMINE [Concomitant]
     Dosage: EXTENDED RELEASE
     Route: 048
  6. OCREVUS [Suspect]
     Active Substance: OCRELIZUMAB
     Indication: RELAPSING MULTIPLE SCLEROSIS
     Dosage: ONGOING: UNKNOWN
     Route: 065
  7. LORAZEPAM. [Concomitant]
     Active Substance: LORAZEPAM
     Dosage: ONCE
     Route: 048
  8. NONI JUICE [Concomitant]
     Active Substance: NONI FRUIT JUICE
  9. RALOXIFENE. [Concomitant]
     Active Substance: RALOXIFENE
     Route: 048
  10. AMPHETAMINE;DEXTROAMPHETAMINE [Concomitant]
     Route: 048
  11. ROSUVASTATIN. [Concomitant]
     Active Substance: ROSUVASTATIN
     Route: 048
  12. METHYLPREDNISOLONE. [Concomitant]
     Active Substance: METHYLPREDNISOLONE
     Route: 048
  13. ZALEPLON. [Concomitant]
     Active Substance: ZALEPLON
     Dosage: PRN BEDTIME.
     Route: 048

REACTIONS (1)
  - COVID-19 [Unknown]

NARRATIVE: CASE EVENT DATE: 20201116
